FAERS Safety Report 10272599 (Version 2)
Quarter: 2014Q3

REPORT INFORMATION
  Report Type: Spontaneous
  Country: US (occurrence: US)
  Receive Date: 20140702
  Receipt Date: 20140710
  Transmission Date: 20150326
  Serious: Yes (Hospitalization)
  Sender: FDA-Public Use
  Company Number: US-AMGEN-USASP2014049069

PATIENT
  Age: 59 Year
  Sex: Female

DRUGS (16)
  1. TRAVATAN Z [Concomitant]
     Active Substance: TRAVOPROST
     Dosage: 0.004 % 1 DROP QD, IN EVENING
     Route: 047
  2. TIMOLOL [Concomitant]
     Active Substance: TIMOLOL
     Dosage: 0.5 %, 1 DROP TWO TIMES EVERY DAY
     Route: 047
  3. SPIRONOLACTONE. [Concomitant]
     Active Substance: SPIRONOLACTONE
     Dosage: 1 TABLET 25 MG, QD
     Route: 048
  4. OMEPRAZOLE. [Concomitant]
     Active Substance: OMEPRAZOLE
     Dosage: 20 MG, QD, BEFORE A MEAL
     Route: 048
  5. DESONIDE. [Concomitant]
     Active Substance: DESONIDE
     Dosage: 0.05 %, BID, AS NECESSARY
     Dates: start: 20130603
  6. CUTIVATE [Concomitant]
     Active Substance: FLUTICASONE PROPIONATE
     Dosage: 0.05 %, QD
     Route: 061
     Dates: start: 20130601
  7. LISINOPRIL. [Concomitant]
     Active Substance: LISINOPRIL
     Dosage: 10 MG, UNK
  8. DIAZEPAM. [Concomitant]
     Active Substance: DIAZEPAM
     Dosage: 2.5 MG, UNK
     Route: 054
  9. BABY ASPIRIN [Concomitant]
     Active Substance: ASPIRIN
     Dosage: 81 MG, QD
     Route: 048
  10. ENBREL [Suspect]
     Active Substance: ETANERCEPT
     Indication: PSORIASIS
     Dosage: 50 MG, QWK
     Route: 058
     Dates: start: 2002, end: 20140626
  11. HUMULIN NOS [Concomitant]
     Active Substance: INSULIN HUMAN
     Dosage: 100 UNIT/ML (70/30), UNK
     Route: 058
  12. ACTOS [Concomitant]
     Active Substance: PIOGLITAZONE HYDROCHLORIDE
     Dosage: 15 MG, QD
     Route: 048
  13. FOLIC ACID. [Concomitant]
     Active Substance: FOLIC ACID
     Dosage: 1 MG, QD
     Route: 048
  14. SIMVASTATIN. [Concomitant]
     Active Substance: SIMVASTATIN
     Dosage: 20 MG, QD , IN THE EVENING
     Route: 048
  15. PILOCARPINE [Concomitant]
     Active Substance: PILOCARPINE
     Dosage: 2 %, UNK
  16. LEVOTHYROXINE [Concomitant]
     Active Substance: LEVOTHYROXINE
     Dosage: 75 MUG, QD
     Route: 048

REACTIONS (6)
  - Cholelithiasis [Recovered/Resolved]
  - Psoriasis [Unknown]
  - Gangrene [Recovered/Resolved]
  - Intertrigo [Unknown]
  - Skin plaque [Not Recovered/Not Resolved]
  - Furuncle [Recovered/Resolved]

NARRATIVE: CASE EVENT DATE: 2004
